FAERS Safety Report 19469363 (Version 3)
Quarter: 2021Q3

REPORT INFORMATION
  Report Type: Report from Study
  Country: US (occurrence: US)
  Receive Date: 20210628
  Receipt Date: 20210809
  Transmission Date: 20211014
  Serious: No
  Sender: FDA-Public Use
  Company Number: NVSC2021US133520

PATIENT
  Age: 60 Year
  Sex: Female

DRUGS (1)
  1. COSENTYX [Suspect]
     Active Substance: SECUKINUMAB
     Indication: PSORIATIC ARTHROPATHY
     Dosage: 300 MG (ONCE A WEEK FOR 5 WEEKS AND THEN Q 4 WEEKS), QW
     Route: 058

REACTIONS (8)
  - Illness [Unknown]
  - Nasopharyngitis [Unknown]
  - Insomnia [Unknown]
  - Sinus disorder [Unknown]
  - Cough [Unknown]
  - Ageusia [Unknown]
  - Pyrexia [Unknown]
  - Anosmia [Unknown]

NARRATIVE: CASE EVENT DATE: 20210607
